FAERS Safety Report 7436892-1 (Version None)
Quarter: 2011Q2

REPORT INFORMATION
  Report Type: 
  Country: None (occurrence: None)
  Receive Date: 20110426
  Receipt Date: 20110204
  Transmission Date: 20111010
  Serious: Yes (Hospitalization)
  Sender: FDA-Public Use
  Company Number: US-BAYER-2011-021206

PATIENT
  Age: 16 Year
  Sex: Female
  Weight: 56.689 kg

DRUGS (3)
  1. YAZ [Suspect]
     Indication: MENSTRUAL CYCLE MANAGEMENT
     Dosage: UNK
     Dates: start: 20071001, end: 20080101
  2. ROCEPHIN [Concomitant]
     Indication: PNEUMONIA
  3. AZITHROMYCIN [Concomitant]
     Indication: PNEUMONIA

REACTIONS (2)
  - THROMBOSIS [None]
  - PULMONARY EMBOLISM [None]
